FAERS Safety Report 7914506-1 (Version None)
Quarter: 2011Q4

REPORT INFORMATION
  Report Type: 
  Country: None (occurrence: None)
  Receive Date: 20111110
  Receipt Date: 20111024
  Transmission Date: 20120403
  Serious: Yes (Hospitalization)
  Sender: FDA-Public Use
  Company Number: JPI-P-017894

PATIENT
  Age: 17 Year
  Sex: Female

DRUGS (6)
  1. XYREM [Suspect]
     Indication: LYME DISEASE
     Dosage: 705 GM (3.75GM. 2 IN 1D), ORAL
     Route: 048
     Dates: start: 20110601, end: 20110101
  2. XYREM [Suspect]
     Indication: INSOMNIA
     Dosage: 705 GM (3.75GM. 2 IN 1D), ORAL
     Route: 048
     Dates: start: 20110601, end: 20110101
  3. XYREM [Suspect]
     Indication: LYME DISEASE
     Dosage: 705 GM (3.75GM. 2 IN 1D), ORAL
     Route: 048
     Dates: start: 20110101, end: 20111001
  4. XYREM [Suspect]
     Indication: INSOMNIA
     Dosage: 705 GM (3.75GM. 2 IN 1D), ORAL
     Route: 048
     Dates: start: 20110101, end: 20111001
  5. HYDROMORPHONE HCL [Suspect]
     Indication: PAIN
     Dosage: (2 MG, AS REQUIRED), INTRAVENOUS 7.5 GM (3.75 GM, 2 IN 1 D), ORAL
     Route: 048
     Dates: start: 20110101, end: 20111001
  6. HYDROMORPHONE HCL [Suspect]
     Indication: PAIN
     Dosage: (2 MG, AS REQUIRED), INTRAVENOUS 7.5 GM (3.75 GM, 2 IN 1 D), ORAL
     Route: 048
     Dates: start: 20110101, end: 20110501

REACTIONS (5)
  - PAIN [None]
  - INAPPROPRIATE SCHEDULE OF DRUG ADMINISTRATION [None]
  - OXYGEN SATURATION DECREASED [None]
  - HEART RATE DECREASED [None]
  - RESPIRATORY DEPRESSION [None]
